FAERS Safety Report 13990542 (Version 2)
Quarter: 2017Q4

REPORT INFORMATION
  Report Type: Spontaneous
  Country: US (occurrence: US)
  Receive Date: 20170920
  Receipt Date: 20171013
  Transmission Date: 20180321
  Serious: Yes (Disabling)
  Sender: FDA-Public Use
  Company Number: US-PFIZER INC-2017401568

PATIENT
  Sex: Female

DRUGS (1)
  1. LYRICA [Suspect]
     Active Substance: PREGABALIN
     Indication: FIBROMYALGIA
     Dosage: 150 MG, 2X/DAY (MORNING AND NIGHT)
     Route: 048
     Dates: end: 201707

REACTIONS (7)
  - Disturbance in attention [Unknown]
  - Abnormal behaviour [Unknown]
  - Pre-existing condition improved [Unknown]
  - Memory impairment [Recovered/Resolved]
  - Psychotic disorder [Recovered/Resolved]
  - Feeling abnormal [Not Recovered/Not Resolved]
  - Therapeutic response unexpected [Unknown]
